FAERS Safety Report 6583729-9 (Version None)
Quarter: 2010Q1

REPORT INFORMATION
  Report Type: 
  Country: None (occurrence: None)
  Receive Date: 20100216
  Receipt Date: 20100205
  Transmission Date: 20100710
  Serious: Yes (Other)
  Sender: FDA-Public Use
  Company Number: US-ROCHE-684885

PATIENT
  Sex: Female
  Weight: 145.6 kg

DRUGS (2)
  1. ACTEMRA [Suspect]
     Indication: RHEUMATOID ARTHRITIS
     Dosage: FORM: INFUSION
     Route: 042
     Dates: start: 20100202
  2. METHOTREXATE [Concomitant]
     Dosage: DOSE: 0.8 ML
     Route: 042

REACTIONS (7)
  - ASTHENIA [None]
  - DIARRHOEA [None]
  - GASTROOESOPHAGEAL REFLUX DISEASE [None]
  - HEADACHE [None]
  - JOINT SWELLING [None]
  - NAUSEA [None]
  - PRURITUS [None]
